FAERS Safety Report 9418695 (Version 1)
Quarter: 2013Q3

REPORT INFORMATION
  Report Type: Spontaneous
  Country: US (occurrence: US)
  Receive Date: 20130725
  Receipt Date: 20130725
  Transmission Date: 20140515
  Serious: Yes (Hospitalization)
  Sender: FDA-Public Use
  Company Number: US-ACCORD-018666

PATIENT
  Age: 53 Year
  Sex: Male

DRUGS (2)
  1. TACROLIMUS [Suspect]
     Indication: LIVER TRANSPLANT
  2. ATAZANAVIR [Interacting]
     Indication: ANTIRETROVIRAL THERAPY

REACTIONS (5)
  - Renal failure acute [Recovered/Resolved]
  - Nausea [Unknown]
  - Vomiting [Unknown]
  - Drug level increased [Recovered/Resolved]
  - Drug interaction [Unknown]
